FAERS Safety Report 17056929 (Version 1)
Quarter: 2019Q4

REPORT INFORMATION
  Report Type: Spontaneous
  Country: GB (occurrence: GB)
  Receive Date: 20191121
  Receipt Date: 20191121
  Transmission Date: 20200122
  Serious: Yes (Hospitalization)
  Sender: FDA-Public Use
  Company Number: GB-AUROBINDO-AUR-APL-2014-00031

PATIENT
  Age: 81 Year
  Sex: Female

DRUGS (2)
  1. METFORMIN HYDROCHLORIDE 500 MG FILM-COATED TABLETS [Suspect]
     Active Substance: METFORMIN HYDROCHLORIDE
     Indication: TYPE 2 DIABETES MELLITUS
     Dosage: UNK
     Route: 065
  2. METFORMIN [Suspect]
     Active Substance: METFORMIN HYDROCHLORIDE
     Indication: TYPE 2 DIABETES MELLITUS
     Dosage: UNK
     Route: 065

REACTIONS (5)
  - Dizziness [Unknown]
  - Aggression [Unknown]
  - Blood glucose abnormal [Unknown]
  - Disorientation [Unknown]
  - Confusional state [Unknown]

NARRATIVE: CASE EVENT DATE: 201312
